FAERS Safety Report 25186478 (Version 8)
Quarter: 2025Q4

REPORT INFORMATION
  Report Type: Spontaneous
  Country: US (occurrence: US)
  Receive Date: 20250411
  Receipt Date: 20251013
  Transmission Date: 20260118
  Serious: Yes (Other)
  Sender: IPSEN BIOPHARMACEUTICALS, INC.
  Company Number: US-IPSEN Group, Research and Development-2025-07434

PATIENT
  Sex: Female

DRUGS (27)
  1. IQIRVO [Suspect]
     Active Substance: ELAFIBRANOR
     Indication: Primary biliary cholangitis
     Route: 048
     Dates: start: 202501
  2. URSODIOL [Concomitant]
     Active Substance: URSODIOL
  3. TRELEGY ELLIPTA 200-62.5 BLST W/DEV [Concomitant]
     Dosage: 200-62.5 BLST W/DEV
  4. SIMVASTATIN [Concomitant]
     Active Substance: SIMVASTATIN
  5. SIMETHICONE 80 MG TAB CHEW [Concomitant]
     Dosage: 80 MG TAB CHEW
  6. ROFLUMILAST  500 MCG TABLET [Concomitant]
     Dosage: 500 MCG TABLET
  7. PREDNISONE [Concomitant]
     Active Substance: PREDNISONE
     Dosage: 20 MG TABLET
  8. OXYCODONE  HCL 10 MG TABLET [Concomitant]
     Dosage: 10 MG TABLET
  9. OMEPRAZOLE [Concomitant]
     Active Substance: OMEPRAZOLE
     Dosage: 20 MG CAPSULE DR
  10. NARCAN [Concomitant]
     Active Substance: NALOXONE HYDROCHLORIDE
     Dosage: 4 MG SPRAY
  11. MINERALS\VITAMINS [Concomitant]
     Active Substance: MINERALS\VITAMINS
     Dosage: AREDS 2
  12. MORPHINE SULFATE [Concomitant]
     Active Substance: MORPHINE SULFATE
     Dosage: ER 15 MG TABLET SA
  13. METHOCARBAMOL 500 MG TABLET [Concomitant]
     Dosage: 500 MG TABLET
  14. LISINOPRIL [Concomitant]
     Active Substance: LISINOPRIL
     Dosage: 20 MG TABLET
  15. LACTULOSE [Concomitant]
     Active Substance: LACTULOSE
     Dosage: 10 G/15 ML SOLUTION
  16. HYDROXYZINE HYDROCHLORIDE [Concomitant]
     Active Substance: HYDROXYZINE HYDROCHLORIDE
     Dosage: 25 MG TABLET
  17. MUCINEX 600 MG TAB ER 12H [Concomitant]
     Dosage: 600 MG TAB ER 12H
  18. ESTRADIOL 0.01 % [Concomitant]
     Dosage: 0.01 % CREAM/APPL
  19. DULOXETINE HYDROCHLORIDE [Concomitant]
     Active Substance: DULOXETINE HYDROCHLORIDE
     Dosage: DULOXETINE HCL 30 MG CAPSULE DR
  20. COLACE [Concomitant]
     Active Substance: DOCUSATE SODIUM
     Dosage: 100 MG CAPSULE
  21. DIPHENHYDRAMINE HYDROCHLORIDE [Concomitant]
     Active Substance: DIPHENHYDRAMINE HYDROCHLORIDE
     Dosage: 50 MG CAPSULE
  22. COMBIVENT RESPIMAT [Concomitant]
     Active Substance: ALBUTEROL SULFATE\IPRATROPIUM BROMIDE
  23. CETIRIZINE HCL [Concomitant]
     Active Substance: CETIRIZINE HYDROCHLORIDE
     Dosage: 10 MG TABLET
  24. CALCIUM [Concomitant]
     Active Substance: CALCIUM
     Dosage: 600 MG TABLET
  25. AMITRIPTYLINE HYDROCHLORIDE [Concomitant]
     Active Substance: AMITRIPTYLINE HYDROCHLORIDE
     Dosage: 10 MG TABLET
  26. ALENDRONATE SODIUM [Concomitant]
     Active Substance: ALENDRONATE SODIUM
     Dosage: 70 MG TABLET
  27. XARELTO [Concomitant]
     Active Substance: RIVAROXABAN

REACTIONS (12)
  - Renal impairment [Unknown]
  - Nausea [Unknown]
  - Vomiting [Recovered/Resolved]
  - Laboratory test abnormal [Unknown]
  - Dyspnoea [Unknown]
  - Contusion [Unknown]
  - Weight increased [Unknown]
  - Diarrhoea [Unknown]
  - Headache [Unknown]
  - Pruritus [Unknown]
  - Urticaria [Unknown]
  - Adverse event [Unknown]
